FAERS Safety Report 4302971-0 (Version None)
Quarter: 2004Q1

REPORT INFORMATION
  Report Type: 
  Country: None (occurrence: None)
  Receive Date: 20040224
  Receipt Date: 20031013
  Transmission Date: 20041129
  Serious: Yes (Death)
  Sender: FDA-Public Use
  Company Number: US-GLAXOSMITHKLINE-A0430333A

PATIENT
  Age: 16 Year
  Sex: Male
  Weight: 61.4 kg

DRUGS (8)
  1. PAXIL [Suspect]
     Indication: DYSTHYMIC DISORDER
     Route: 048
     Dates: start: 20000605, end: 20010101
  2. RITALIN [Concomitant]
     Dates: start: 20000809, end: 20000906
  3. CONCERTA [Concomitant]
     Dates: start: 20000906, end: 20010409
  4. ADDERALL 10 [Concomitant]
     Dates: start: 20010409, end: 20011031
  5. ADDERALL [Concomitant]
     Dates: start: 20011031
  6. BENZACLIN [Concomitant]
     Route: 061
  7. NASONEX [Concomitant]
     Dosage: 4PUFF AS DIRECTED
     Route: 045
  8. CONCERTA [Concomitant]
     Route: 048

REACTIONS (7)
  - AMPHETAMINES POSITIVE [None]
  - ASTHENIA [None]
  - BLOOD CANNABINOIDS INCREASED [None]
  - COMPLETED SUICIDE [None]
  - DEPRESSED MOOD [None]
  - SOCIAL AVOIDANT BEHAVIOUR [None]
  - TOXICOLOGIC TEST ABNORMAL [None]
